FAERS Safety Report 4808856-5 (Version None)
Quarter: 2005Q4

REPORT INFORMATION
  Report Type: 
  Country: None (occurrence: None)
  Receive Date: 20051021
  Receipt Date: 20040625
  Transmission Date: 20060501
  Serious: No
  Sender: FDA-Public Use
  Company Number: DE_040613856

PATIENT
  Age: 80 Year
  Sex: Male

DRUGS (7)
  1. ZYPREXA [Suspect]
     Indication: BIPOLAR DISORDER
     Dosage: 10 MG DAY
     Dates: start: 20040227, end: 20040426
  2. ZYPREXA [Suspect]
     Indication: DEPRESSION
     Dosage: 10 MG DAY
     Dates: start: 20040227, end: 20040426
  3. ORFIRIL (VALPROIC ACID) [Concomitant]
  4. RAMIPRIL [Concomitant]
  5. ESIDRIX [Concomitant]
  6. LEVOTHYROXINE SODIUM [Concomitant]
  7. MARCUMAR [Concomitant]

REACTIONS (2)
  - DRUG EFFECT INCREASED [None]
  - THROMBOCYTOPENIA [None]
